FAERS Safety Report 17225333 (Version 1)
Quarter: 2020Q1

REPORT INFORMATION
  Report Type: Spontaneous
  Country: PL (occurrence: PL)
  Receive Date: 20200102
  Receipt Date: 20200102
  Transmission Date: 20200409
  Serious: Yes (Other)
  Sender: FDA-Public Use
  Company Number: PL-FRESENIUS KABI-FK201914709

PATIENT
  Age: 25 Year
  Sex: Male

DRUGS (6)
  1. FLUCONAZOLE. [Suspect]
     Active Substance: FLUCONAZOLE
     Indication: TINEA BARBAE
     Route: 065
     Dates: start: 200910
  2. KETOCONAZOLE. [Suspect]
     Active Substance: KETOCONAZOLE
     Indication: TINEA BARBAE
     Route: 065
     Dates: start: 200910, end: 200910
  3. AMOXICILLIN/CLAVUNALIC ACID (MANUFACTURER UNKNOWN) [Suspect]
     Active Substance: AMOXICILLIN\CLAVULANIC ACID
     Indication: TINEA BARBAE
     Route: 065
     Dates: start: 2009, end: 2009
  4. TERBINAFINE. [Suspect]
     Active Substance: TERBINAFINE
     Indication: TINEA BARBAE
     Route: 048
     Dates: start: 200910
  5. VANCOMYCIN (MANUFACTURER UNKNOWN) [Suspect]
     Active Substance: VANCOMYCIN
     Indication: TINEA BARBAE
     Route: 065
     Dates: start: 200910
  6. CEFTRIAXONE FOR INJECTION (MANUFACTURER UNKNOWN) [Suspect]
     Active Substance: CEFTRIAXONE
     Indication: TINEA BARBAE
     Route: 042
     Dates: start: 200910

REACTIONS (1)
  - Dermatophytosis [Recovering/Resolving]
